FAERS Safety Report 10749568 (Version 2)
Quarter: 2015Q1

REPORT INFORMATION
  Report Type: Spontaneous
  Country: DE (occurrence: DE)
  Receive Date: 20150129
  Receipt Date: 20150225
  Transmission Date: 20150721
  Serious: Yes (Congenital Anomaly, Other)
  Sender: FDA-Public Use
  Company Number: DE-TEVA-535517GER

PATIENT
  Age: 1 Day
  Sex: Female

DRUGS (5)
  1. CITALOPRAM [Suspect]
     Active Substance: CITALOPRAM HYDROBROMIDE
     Indication: DEPRESSION
     Dosage: 40 MILLIGRAM DAILY; DOSAGE REDUCTION FROM GW 36
     Route: 064
     Dates: start: 20131004, end: 20140711
  2. CLOTRIMAZOLE. [Concomitant]
     Active Substance: CLOTRIMAZOLE
     Indication: VULVOVAGINAL MYCOTIC INFECTION
     Route: 064
     Dates: start: 20140220, end: 20140225
  3. (S)-MILCHSAEURE [Concomitant]
     Indication: PROPHYLAXIS OF VAGINAL FLORA IMBALANCE
     Route: 064
     Dates: start: 20140226, end: 20140304
  4. MAGNESIUM [Concomitant]
     Active Substance: MAGNESIUM
     Indication: SELF-MEDICATION
     Dosage: 525 MG/D (175)
     Route: 064
     Dates: start: 20140522, end: 20140701
  5. OPTIGRAV [Concomitant]
     Indication: PROPHYLAXIS OF NEURAL TUBE DEFECT
     Route: 064
     Dates: start: 20131004, end: 20140722

REACTIONS (2)
  - Oxygen saturation abnormal [Recovered/Resolved]
  - Foetal exposure during pregnancy [Unknown]

NARRATIVE: CASE EVENT DATE: 20140722
